FAERS Safety Report 13363200 (Version 1)
Quarter: 2017Q1

REPORT INFORMATION
  Report Type: Spontaneous
  Country: US (occurrence: US)
  Receive Date: 20170323
  Receipt Date: 20170323
  Transmission Date: 20170429
  Serious: No
  Sender: FDA-Public Use
  Company Number: GXBR2017US000832

PATIENT
  Sex: Male

DRUGS (2)
  1. NITRO-BID [Suspect]
     Active Substance: NITROGLYCERIN
     Indication: PAIN
     Dosage: ^PEA SIZED^ AMOUNT ON TOE, QD
     Route: 061
     Dates: start: 20161207
  2. ANTIBIOTICS [Concomitant]
     Active Substance: UNSPECIFIED INGREDIENT
     Dosage: UNK DF, UNK

REACTIONS (2)
  - Product use issue [Not Recovered/Not Resolved]
  - Nail discolouration [Not Recovered/Not Resolved]
